FAERS Safety Report 10040842 (Version 2)
Quarter: 2014Q2

REPORT INFORMATION
  Report Type: Spontaneous
  Country: US (occurrence: US)
  Receive Date: 20140327
  Receipt Date: 20140416
  Transmission Date: 20141212
  Serious: No
  Sender: FDA-Public Use
  Company Number: US-PFIZER INC-2014083927

PATIENT
  Age: 8 Year
  Sex: Female
  Weight: 22.68 kg

DRUGS (2)
  1. GENOTROPIN MQ [Suspect]
     Indication: GONADAL DYSGENESIS
     Dosage: 0.8 MG, DAILY
     Route: 058
     Dates: start: 20140201
  2. FLUORIDE [Concomitant]
     Dosage: 0.5 MG, DAILY

REACTIONS (2)
  - Vision blurred [Unknown]
  - Abnormal behaviour [Unknown]
